FAERS Safety Report 15014843 (Version 1)
Quarter: 2018Q2

REPORT INFORMATION
  Report Type: Spontaneous
  Country: US (occurrence: US)
  Receive Date: 20180522
  Receipt Date: 20180522
  Transmission Date: 20180711
  Serious: No
  Sender: FDA-Public Use
  Company Number: None

PATIENT
  Age: 37 Year
  Sex: Female

DRUGS (1)
  1. LETAIRIS [Suspect]
     Active Substance: AMBRISENTAN
     Indication: SYSTEMIC LUPUS ERYTHEMATOSUS
     Route: 048
     Dates: start: 20180430, end: 20180504

REACTIONS (6)
  - Rheumatoid arthritis [None]
  - Tachycardia [None]
  - Tremor [None]
  - Nausea [None]
  - Swelling face [None]
  - Vomiting [None]

NARRATIVE: CASE EVENT DATE: 20180430
